FAERS Safety Report 8153985-4 (Version None)
Quarter: 2012Q1

REPORT INFORMATION
  Report Type: 
  Country: None (occurrence: None)
  Receive Date: 20120221
  Receipt Date: 20120221
  Transmission Date: 20120608
  Serious: No
  Sender: FDA-Public Use
  Company Number: None

PATIENT
  Age: 74 Year
  Sex: Female
  Weight: 92.532 kg

DRUGS (1)
  1. TEMAZEPAM [Suspect]
     Indication: RESTLESS LEGS SYNDROME
     Dosage: 30-MG
     Route: 048
     Dates: start: 20120215, end: 20120217

REACTIONS (2)
  - INSOMNIA [None]
  - DRUG INEFFECTIVE [None]
